FAERS Safety Report 8987401 (Version 1)
Quarter: 2012Q4

REPORT INFORMATION
  Report Type: Report from Study
  Country: DE (occurrence: DE)
  Receive Date: 20121226
  Receipt Date: 20121226
  Transmission Date: 20130627
  Serious: Yes (Hospitalization)
  Sender: FDA-Public Use
  Company Number: DE-ROCHE-1170782

PATIENT
  Sex: Female
  Weight: 61.5 kg

DRUGS (10)
  1. TOCILIZUMAB [Suspect]
     Indication: RHEUMATOID ARTHRITIS
     Route: 042
     Dates: start: 20100817
  2. PREDNISOLONE [Concomitant]
     Route: 065
  3. SIMVASTATIN [Concomitant]
     Route: 065
  4. PANTOPRAZOLE [Concomitant]
     Route: 065
  5. TORASEMIDE [Concomitant]
     Route: 065
  6. METOPROLOL [Concomitant]
     Route: 065
  7. TILIDINE [Concomitant]
     Route: 065
  8. NOVAMINSULFON [Concomitant]
     Route: 065
  9. TOLPERISONE [Concomitant]
     Route: 065
  10. URSOFALK [Concomitant]
     Route: 065

REACTIONS (1)
  - Skin disorder [Recovered/Resolved]
